FAERS Safety Report 14333642 (Version 1)
Quarter: 2017Q4

REPORT INFORMATION
  Report Type: Spontaneous
  Country: CA (occurrence: CA)
  Receive Date: 20171228
  Receipt Date: 20171228
  Transmission Date: 20180321
  Serious: Yes (Death, Life-Threatening, Hospitalization, Disabling)
  Sender: FDA-Public Use
  Company Number: None

PATIENT
  Age: 63 Year
  Sex: Female
  Weight: 77.11 kg

DRUGS (2)
  1. PREDNISONE. [Concomitant]
     Active Substance: PREDNISONE
  2. SIMPONI [Suspect]
     Active Substance: GOLIMUMAB
     Indication: RHEUMATOID ARTHRITIS
     Dosage: BIMONTHLY IV
     Route: 042
     Dates: start: 20150714, end: 20160217

REACTIONS (3)
  - Lymphoma [None]
  - Cerebrovascular accident [None]
  - General physical health deterioration [None]

NARRATIVE: CASE EVENT DATE: 20160516
